FAERS Safety Report 7642094-6 (Version None)
Quarter: 2011Q3

REPORT INFORMATION
  Report Type: 
  Country: None (occurrence: None)
  Receive Date: 20110728
  Receipt Date: 20110715
  Transmission Date: 20111222
  Serious: Yes (Hospitalization)
  Sender: FDA-Public Use
  Company Number: ES-ELI_LILLY_AND_COMPANY-ES201107004401

PATIENT
  Sex: Female
  Weight: 60 kg

DRUGS (11)
  1. CITALOPRAM HYDROBROMIDE [Concomitant]
     Indication: ANXIETY
     Dosage: 20 MG, QD
     Route: 048
  2. IBANDRONATE SODIUM [Concomitant]
     Indication: BONE DISORDER
     Dosage: UNK, MONTHLY (1/M)
     Route: 048
  3. ENANTYUM [Concomitant]
     Indication: PAIN
     Dosage: 25 MG, PRN
     Route: 048
  4. ACETAMINOPHEN [Concomitant]
     Indication: PAIN
     Dosage: 1 G, TID
     Route: 048
  5. OMEPRAZOLE [Concomitant]
     Indication: GASTRIC DISORDER
     Dosage: 20 MG, QD
     Route: 048
  6. OSTEOPOR [Concomitant]
     Indication: MINERAL SUPPLEMENTATION
     Dosage: UNK, QD
     Route: 048
  7. VISCOFRESH [Concomitant]
     Indication: EYE DISORDER
     Dosage: 2 DF, UNK
  8. FORTEO [Suspect]
     Indication: OSTEOPOROSIS
     Dosage: 20 UG, QD
     Route: 058
     Dates: start: 20110304
  9. ATENOLOL [Concomitant]
     Indication: CARDIAC DISORDER
     Dosage: 50 MG, QD
     Route: 048
  10. LOSARTAN/HYDROCHLOORTHIAZIDE [Concomitant]
     Indication: HYPERTENSION
     Dosage: 50 MG, QD
     Route: 048
  11. LORAZEPAM [Concomitant]
     Indication: SLEEP DISORDER
     Dosage: 1 MG, QD
     Route: 048

REACTIONS (1)
  - BRADYCARDIA [None]
